FAERS Safety Report 4413997-0 (Version None)
Quarter: 2004Q3

REPORT INFORMATION
  Report Type: 
  Country: None (occurrence: None)
  Receive Date: 20040728
  Receipt Date: 20040716
  Transmission Date: 20050211
  Serious: Yes (Other)
  Sender: FDA-Public Use
  Company Number: DE-JNJFOC-20040607219

PATIENT
  Age: 19 Year
  Sex: Male

DRUGS (1)
  1. RISPERDAL [Suspect]
     Indication: SCHIZOPHRENIA
     Dosage: 7 MG, IN 1 DAY, ORAL
     Route: 048
     Dates: start: 20021001

REACTIONS (3)
  - BRADYCARDIA [None]
  - DRUG INEFFECTIVE [None]
  - PSYCHOTIC DISORDER [None]
